FAERS Safety Report 8760279 (Version 1)
Quarter: 2012Q4

REPORT INFORMATION
  Report Type: Spontaneous
  Country: US (occurrence: None)
  Receive Date: 20120829
  Receipt Date: 20120829
  Transmission Date: 20130627
  Serious: Yes (Hospitalization)
  Sender: FDA-Public Use
  Company Number: None

PATIENT
  Age: 36 Year
  Sex: Female
  Weight: 112 kg

DRUGS (2)
  1. VANCOMYCIN [Suspect]
     Indication: OSTEOMYELITIS
     Route: 042
     Dates: start: 20120823, end: 20120825
  2. VANCOMYCIN [Suspect]
     Indication: GANGRENE
     Route: 042
     Dates: start: 20120823, end: 20120825

REACTIONS (2)
  - Blood creatinine increased [None]
  - Drug level increased [None]
